FAERS Safety Report 10068372 (Version 1)
Quarter: 2014Q2

REPORT INFORMATION
  Report Type: Spontaneous
  Country: FR (occurrence: FR)
  Receive Date: 20140409
  Receipt Date: 20140409
  Transmission Date: 20141212
  Serious: Yes (Hospitalization)
  Sender: FDA-Public Use
  Company Number: FR-PFIZER INC-2014098470

PATIENT
  Age: 76 Year
  Sex: Female

DRUGS (8)
  1. EUPANTOL [Suspect]
     Dosage: 40 MG, 2X/DAY
     Route: 042
     Dates: start: 20130219, end: 20130313
  2. EUPANTOL [Suspect]
     Dosage: 40 MG, 2X/DAY
     Route: 048
     Dates: start: 20130314, end: 20130327
  3. AMIKLIN [Suspect]
     Indication: BACTERIAL INFECTION
     Dosage: UNK
     Dates: start: 20130302, end: 20130303
  4. PIPERACILLINE TAZOBACTAM KABI [Suspect]
     Indication: BACTERIAL INFECTION
     Dosage: 4 G, 3X/DAY
     Route: 042
     Dates: start: 20130301, end: 20130314
  5. BISOCE [Concomitant]
     Dosage: UNK
  6. ESIDREX [Concomitant]
     Dosage: UNK
  7. ALISKIREN/HYDROCHLOROTHIAZIDE [Concomitant]
     Dosage: UNK
  8. LOVENOX [Concomitant]
     Indication: PROPHYLAXIS
     Dosage: 0.4 ML, DAILY
     Dates: start: 20130218

REACTIONS (1)
  - Drug reaction with eosinophilia and systemic symptoms [Recovered/Resolved]
